FAERS Safety Report 23861315 (Version 2)
Quarter: 2024Q3

REPORT INFORMATION
  Report Type: Report from Study
  Country: BR (occurrence: BR)
  Receive Date: 20240516
  Receipt Date: 20240712
  Transmission Date: 20241017
  Serious: Yes (Other)
  Sender: NOVARTIS
  Company Number: BR-002147023-NVSC2024BR101163

PATIENT
  Sex: Female

DRUGS (2)
  1. KISQALI [Suspect]
     Active Substance: RIBOCICLIB
     Indication: Product used for unknown indication
     Dosage: UNK
     Route: 065
  2. LETROZOLE [Suspect]
     Active Substance: LETROZOLE
     Indication: Product used for unknown indication
     Dosage: UNK
     Route: 065

REACTIONS (10)
  - Metastases to liver [Unknown]
  - Metastasis [Unknown]
  - Weight decreased [Unknown]
  - Malaise [Unknown]
  - Hepatomegaly [Unknown]
  - Hepatic mass [Unknown]
  - Drug ineffective [Unknown]
  - Speech disorder [Unknown]
  - Dyspnoea [Unknown]
  - Ill-defined disorder [Unknown]
